FAERS Safety Report 4694675-X (Version None)
Quarter: 2005Q2

REPORT INFORMATION
  Report Type: 
  Country: None (occurrence: None)
  Receive Date: 20050620
  Receipt Date: 20050606
  Transmission Date: 20051028
  Serious: Yes (Congenital Anomaly)
  Sender: FDA-Public Use
  Company Number: FR-GLAXOSMITHKLINE-B0383781A

PATIENT

DRUGS (3)
  1. LAMICTAL [Suspect]
     Dosage: 300MG PER DAY
  2. SPECIAFOLDINE [Concomitant]
  3. KEPPRA [Concomitant]
     Dosage: 1500MG PER DAY

REACTIONS (2)
  - DRUG EXPOSURE DURING PREGNANCY [None]
  - VENTRICULAR SEPTAL DEFECT [None]
